FAERS Safety Report 19902823 (Version 1)
Quarter: 2021Q4

REPORT INFORMATION
  Report Type: Report from Study
  Country: DE (occurrence: DE)
  Receive Date: 20211001
  Receipt Date: 20211001
  Transmission Date: 20220304
  Serious: Yes (Congenital Anomaly)
  Sender: FDA-Public Use
  Company Number: DE-BIOGEN-2021BI01053696

PATIENT
  Age: 1 Month
  Sex: Male
  Weight: 3.16 kg

DRUGS (5)
  1. AVONEX PEN [Suspect]
     Active Substance: INTERFERON BETA-1A
     Indication: Maternal exposure timing unspecified
     Route: 064
     Dates: start: 20130101, end: 201702
  2. AVONEX PEN [Suspect]
     Active Substance: INTERFERON BETA-1A
     Route: 064
     Dates: start: 20190314
  3. AVONEX PEN [Suspect]
     Active Substance: INTERFERON BETA-1A
  4. AVONEX PEN [Suspect]
     Active Substance: INTERFERON BETA-1A
  5. VITAMIN K [Concomitant]
     Active Substance: PHYTONADIONE
     Indication: Prophylaxis
     Route: 048

REACTIONS (5)
  - Vascular malformation [Recovered/Resolved]
  - Seborrhoeic dermatitis [Recovered/Resolved]
  - Dry skin [Not Recovered/Not Resolved]
  - Constipation neonatal [Recovered/Resolved]
  - Foetal exposure during pregnancy [Recovered/Resolved]

NARRATIVE: CASE EVENT DATE: 20171201
